FAERS Safety Report 7874628-0 (Version None)
Quarter: 2011Q4

REPORT INFORMATION
  Report Type: 
  Country: None (occurrence: None)
  Receive Date: 20111031
  Receipt Date: 20111027
  Transmission Date: 20120403
  Serious: Yes (Other)
  Sender: FDA-Public Use
  Company Number: US-PFIZER INC-2011168919

PATIENT
  Sex: Female
  Weight: 43.991 kg

DRUGS (4)
  1. DILANTIN [Suspect]
     Indication: GRAND MAL CONVULSION
     Dosage: 200 MG, 2X/DAY
     Route: 048
     Dates: start: 19690101, end: 20110710
  2. PHENOBARBITAL TAB [Concomitant]
     Dosage: UNK
  3. PHENOBARBITAL [Concomitant]
     Indication: EPILEPSY
     Dosage: 30 MG, 3X/DAY
     Dates: start: 19690101
  4. DILANTIN [Suspect]
     Indication: EPILEPSY

REACTIONS (14)
  - ANTICONVULSANT DRUG LEVEL INCREASED [None]
  - MOVEMENT DISORDER [None]
  - NEUROPATHY PERIPHERAL [None]
  - DYSGEUSIA [None]
  - GAIT DISTURBANCE [None]
  - URINE ARSENIC INCREASED [None]
  - SPEECH DISORDER [None]
  - EATING DISORDER [None]
  - BLOOD SODIUM DECREASED [None]
  - WEIGHT DECREASED [None]
  - FEELING ABNORMAL [None]
  - SENSORY LOSS [None]
  - SKIN EXFOLIATION [None]
  - BLOOD ARSENIC INCREASED [None]
